FAERS Safety Report 18960390 (Version 1)
Quarter: 2021Q1

REPORT INFORMATION
  Report Type: Spontaneous
  Country: AR (occurrence: AR)
  Receive Date: 20210302
  Receipt Date: 20210302
  Transmission Date: 20210420
  Serious: Yes (Hospitalization, Other)
  Sender: FDA-Public Use
  Company Number: AR-PFIZER INC-2021198538

PATIENT
  Age: 59 Year
  Sex: Male

DRUGS (1)
  1. BOSULIF [Suspect]
     Active Substance: BOSUTINIB MONOHYDRATE
     Dosage: UNK
     Dates: start: 20210209, end: 20210211

REACTIONS (4)
  - Ischaemia [Unknown]
  - Diarrhoea [Unknown]
  - Vomiting [Unknown]
  - Dehydration [Unknown]

NARRATIVE: CASE EVENT DATE: 20210209
